FAERS Safety Report 7234059-3 (Version None)
Quarter: 2011Q1

REPORT INFORMATION
  Report Type: 
  Country: None (occurrence: None)
  Receive Date: 20110113
  Receipt Date: 20110113
  Transmission Date: 20110831
  Serious: Yes (Hospitalization)
  Sender: FDA-Public Use
  Company Number: None

PATIENT
  Sex: Female
  Weight: 82 kg

DRUGS (2)
  1. TAXOL [Suspect]
     Dosage: 313 MG
     Dates: end: 20101101
  2. CARBOPLATIN [Suspect]
     Dosage: 513 MG
     Dates: end: 20101101

REACTIONS (2)
  - SEPTIC SHOCK [None]
  - METABOLIC ACIDOSIS [None]
